FAERS Safety Report 22607219 (Version 1)
Quarter: 2023Q2

REPORT INFORMATION
  Report Type: Report from Study
  Country: US (occurrence: US)
  Receive Date: 20230615
  Receipt Date: 20230615
  Transmission Date: 20230721
  Serious: Yes (Life-Threatening, Hospitalization)
  Sender: FDA-Public Use
  Company Number: US-ABBVIE-5291522

PATIENT
  Sex: Male

DRUGS (1)
  1. HUMIRA [Suspect]
     Active Substance: ADALIMUMAB
     Indication: Rheumatoid arthritis
     Dosage: 1 PEN (40 MG)? 2 PKG?FORM STRENGTH: 40MG
     Route: 058
     Dates: start: 20000330

REACTIONS (2)
  - Coma [Not Recovered/Not Resolved]
  - Blast injury [Not Recovered/Not Resolved]
